FAERS Safety Report 4294538-8 (Version None)
Quarter: 2004Q1

REPORT INFORMATION
  Report Type: 
  Country: None (occurrence: None)
  Receive Date: 20040211
  Receipt Date: 20040130
  Transmission Date: 20041129
  Serious: Yes (Hospitalization)
  Sender: FDA-Public Use
  Company Number: 2003AP03117

PATIENT
  Age: 74 Year
  Sex: Male

DRUGS (13)
  1. IRESSA [Suspect]
     Indication: LUNG ADENOCARCINOMA
     Dosage: 250 MG DAILY PO
     Route: 048
     Dates: start: 20030729, end: 20030808
  2. METHYLCOBAL [Concomitant]
  3. TEGRETOL [Concomitant]
  4. BISOLVON [Concomitant]
  5. MUCODYNE [Concomitant]
  6. ADONA [Concomitant]
  7. OPALMON [Concomitant]
  8. THEO-DUR [Concomitant]
  9. DIHYDROCODEINE BITARTRATE INJ [Concomitant]
  10. PACLITAXEL [Concomitant]
  11. CARBOPLATIN [Concomitant]
  12. GEMCITABINE [Concomitant]
  13. TAXOL [Concomitant]

REACTIONS (5)
  - ANOREXIA [None]
  - DYSPNOEA [None]
  - HYPOXIA [None]
  - PLEURAL EFFUSION [None]
  - VOMITING [None]
